FAERS Safety Report 5465831-8 (Version None)
Quarter: 2007Q3

REPORT INFORMATION
  Report Type: 
  Country: None (occurrence: None)
  Receive Date: 20070919
  Receipt Date: 20070919
  Transmission Date: 20080115
  Serious: Yes (Hospitalization, Disabling)
  Sender: FDA-Public Use
  Company Number: None

PATIENT
  Age: 54 Year
  Sex: Female
  Weight: 58.0604 kg

DRUGS (1)
  1. TRAVELER'S FRIEND DOES NOT INDICATE ON BOTTLE NUTRIBIOTIC OF LAKEPORT, [Suspect]
     Indication: DIARRHOEA INFECTIOUS
     Dosage: 3-5 DROPS 1-3 TIMES/DAILY PO
     Route: 048
     Dates: start: 20070913, end: 20070913

REACTIONS (9)
  - CHEMICAL BURNS OF EYE [None]
  - EMOTIONAL DISTRESS [None]
  - EYE PAIN [None]
  - IMPAIRED DRIVING ABILITY [None]
  - IMPAIRED WORK ABILITY [None]
  - INJURY CORNEAL [None]
  - MEDICATION ERROR [None]
  - VISUAL ACUITY REDUCED [None]
  - WRONG DRUG ADMINISTERED [None]
